FAERS Safety Report 8863845 (Version 1)
Quarter: 2012Q4

REPORT INFORMATION
  Report Type: 
  Country: US (occurrence: US)
  Receive Date: 20121024
  Receipt Date: 20121024
  Transmission Date: 20130627
  Serious: No
  Sender: FDA-Public Use
  Company Number: US-AMGEN-USASP2011064513

PATIENT
  Age: 49 Year
  Sex: Female

DRUGS (6)
  1. ENBREL [Suspect]
     Indication: PRODUCT USED FOR UNKNOWN INDICATION
  2. FOLIC ACID [Concomitant]
     Dosage: 20 mg, UNK
  3. XANAX XR [Concomitant]
     Dosage: 0.5 mg, UNK
  4. NEXIUM                             /01479302/ [Concomitant]
     Dosage: 20 mg, UNK
  5. IBUPROFEN [Concomitant]
  6. ACETAMINOPHEN [Concomitant]

REACTIONS (3)
  - Diverticulitis [Unknown]
  - Herpes zoster [Unknown]
  - Chest pain [Unknown]
